FAERS Safety Report 10656980 (Version 2)
Quarter: 2014Q4

REPORT INFORMATION
  Report Type: Report from Study
  Country: DO (occurrence: DO)
  Receive Date: 20141217
  Receipt Date: 20141231
  Transmission Date: 20150529
  Serious: Yes (Hospitalization, Other)
  Sender: FDA-Public Use
  Company Number: PHHY2014DO164296

PATIENT
  Age: 16 Year
  Sex: Female
  Weight: 48.73 kg

DRUGS (8)
  1. EXJADE [Suspect]
     Active Substance: DEFERASIROX
     Indication: SICKLE CELL ANAEMIA
     Dosage: 500 MG, QD
     Route: 048
     Dates: start: 2013
  2. DICLOFENAC [Concomitant]
     Active Substance: DICLOFENAC
     Indication: PRODUCT USED FOR UNKNOWN INDICATION
     Dosage: OT, PRN
     Route: 065
  3. ENALAPRIL [Concomitant]
     Active Substance: ENALAPRIL
     Indication: PRODUCT USED FOR UNKNOWN INDICATION
     Dosage: 5 MG, QD
     Route: 048
  4. FOLIC ACID. [Concomitant]
     Active Substance: FOLIC ACID
     Indication: PRODUCT USED FOR UNKNOWN INDICATION
     Dosage: 5 MG, QD
     Route: 048
  5. HIDROXIUREA [Concomitant]
     Active Substance: HYDROXYUREA
     Indication: PRODUCT USED FOR UNKNOWN INDICATION
     Dosage: 1 DF, QD
     Route: 048
     Dates: start: 201311
  6. OMEPRAZOLE. [Concomitant]
     Active Substance: OMEPRAZOLE
     Indication: PRODUCT USED FOR UNKNOWN INDICATION
     Dosage: 10 MG, QD
     Route: 048
  7. MEFENAMIC-ACID [Concomitant]
     Active Substance: MEFENAMIC ACID
     Indication: PRODUCT USED FOR UNKNOWN INDICATION
     Dosage: OT, PRN
     Route: 065
  8. EXJADE [Suspect]
     Active Substance: DEFERASIROX
     Dosage: 500 MG, QD
     Route: 048
     Dates: start: 20141213

REACTIONS (9)
  - Paraesthesia oral [Recovered/Resolved]
  - Serum ferritin increased [Not Recovered/Not Resolved]
  - Influenza [Not Recovered/Not Resolved]
  - Transient ischaemic attack [Recovered/Resolved]
  - Abdominal distension [Not Recovered/Not Resolved]
  - Headache [Not Recovered/Not Resolved]
  - Tachycardia [Not Recovered/Not Resolved]
  - Dyspepsia [Not Recovered/Not Resolved]
  - Paraesthesia [Recovered/Resolved]

NARRATIVE: CASE EVENT DATE: 2013
